FAERS Safety Report 6404870-7 (Version None)
Quarter: 2009Q4

REPORT INFORMATION
  Report Type: 
  Country: None (occurrence: None)
  Receive Date: 20091019
  Receipt Date: 20090914
  Transmission Date: 20100525
  Serious: No
  Sender: FDA-Public Use
  Company Number: US-BAYER-200914628BCC

PATIENT
  Sex: Female
  Weight: 53 kg

DRUGS (8)
  1. ASPIRIN [Suspect]
     Indication: PAIN
     Route: 048
  2. ALEVE (CAPLET) [Suspect]
     Indication: PROCEDURAL PAIN
     Dosage: UNIT DOSE: 220 MG
     Route: 048
  3. ALEVE (CAPLET) [Suspect]
     Dosage: UNIT DOSE: 220 MG
     Route: 048
     Dates: start: 19990101
  4. ALEVE [Suspect]
     Indication: PROCEDURAL PAIN
     Dosage: UNIT DOSE: 220 MG
     Route: 048
  5. ALEVE [Suspect]
     Dosage: UNIT DOSE: 220 MG
     Route: 048
     Dates: start: 19990101
  6. ADVIL [Concomitant]
     Route: 065
  7. BENADRYL [Concomitant]
     Dosage: TOOK AT NIGHT
     Route: 065
  8. VITAMIN D [Concomitant]
     Dosage: TOOK 4 TIMES A WEEK
     Route: 065

REACTIONS (2)
  - CONTUSION [None]
  - PAIN [None]
